FAERS Safety Report 7827611-5 (Version None)
Quarter: 2011Q4

REPORT INFORMATION
  Report Type: 
  Country: None (occurrence: None)
  Receive Date: 20111020
  Receipt Date: 20111013
  Transmission Date: 20120403
  Serious: Yes (Other)
  Sender: FDA-Public Use
  Company Number: MY-BAXTER-2011BH032405

PATIENT
  Sex: Female
  Weight: 65 kg

DRUGS (1)
  1. SUPRANE [Suspect]
     Indication: MAINTENANCE OF ANAESTHESIA
     Route: 055
     Dates: start: 20111006, end: 20111006

REACTIONS (1)
  - HYPOTENSION [None]
